FAERS Safety Report 22138895 (Version 3)
Quarter: 2023Q2

REPORT INFORMATION
  Report Type: Spontaneous
  Country: JP (occurrence: JP)
  Receive Date: 20230327
  Receipt Date: 20230402
  Transmission Date: 20230721
  Serious: Yes (Hospitalization, Other)
  Sender: FDA-Public Use
  Company Number: JP-SAKK-01317631

PATIENT
  Age: 10 Year
  Sex: Female

DRUGS (2)
  1. LANTUS SOLOSTAR [Suspect]
     Active Substance: INSULIN GLARGINE
     Indication: Suicide attempt
     Dosage: 1350 U
     Route: 058
  2. INSULIN ASPART [Suspect]
     Active Substance: INSULIN ASPART
     Indication: Suicide attempt
     Dosage: 600 U
     Route: 058

REACTIONS (3)
  - Altered state of consciousness [Recovering/Resolving]
  - Intentional overdose [Recovering/Resolving]
  - Blood glucose decreased [Recovering/Resolving]
